FAERS Safety Report 7006240-X (Version None)
Quarter: 2010Q3

REPORT INFORMATION
  Report Type: 
  Country: None (occurrence: None)
  Receive Date: 20100921
  Receipt Date: 20100910
  Transmission Date: 20110219
  Serious: Yes (Other)
  Sender: FDA-Public Use
  Company Number: US-PFIZER INC-2009215733

PATIENT
  Sex: Female

DRUGS (4)
  1. DETROL [Suspect]
     Dosage: UNK
     Dates: start: 20050101
  2. TOVIAZ [Suspect]
     Dosage: 4 MG, UNK
  3. TOVIAZ [Suspect]
     Dosage: 8 MG, SINGLE
  4. VESICARE [Suspect]
     Dosage: UNK

REACTIONS (3)
  - DRUG INEFFECTIVE [None]
  - DYSURIA [None]
  - GROIN PAIN [None]
